FAERS Safety Report 7864188-2 (Version None)
Quarter: 2011Q4

REPORT INFORMATION
  Report Type: 
  Country: None (occurrence: None)
  Receive Date: 20111028
  Receipt Date: 20111025
  Transmission Date: 20120403
  Serious: Yes (Hospitalization)
  Sender: FDA-Public Use
  Company Number: DK-PFIZER INC-2011259522

PATIENT
  Age: 72 Year
  Sex: Female
  Weight: 72 kg

DRUGS (1)
  1. SUNITINIB MALATE [Suspect]
     Indication: METASTATIC RENAL CELL CARCINOMA
     Dosage: 50 MG, 1X/DAY IN 20 DAYS THEN PAUSE IN 12 DAYS
     Dates: start: 20100222, end: 20100502

REACTIONS (5)
  - VOMITING [None]
  - NAUSEA [None]
  - THROMBOCYTOPENIA [None]
  - DEHYDRATION [None]
  - PYREXIA [None]
